FAERS Safety Report 11659370 (Version 1)
Quarter: 2015Q4

REPORT INFORMATION
  Report Type: Spontaneous
  Country: US (occurrence: US)
  Receive Date: 20151026
  Receipt Date: 20151026
  Transmission Date: 20160304
  Serious: Yes (Other)
  Sender: FDA-Public Use
  Company Number: US-AUROBINDO-AUR-APL-2015-09523

PATIENT
  Sex: Female
  Weight: 82 kg

DRUGS (1)
  1. METOPROLOL 25MG [Suspect]
     Active Substance: METOPROLOL
     Indication: DIABETES MELLITUS
     Dosage: 1 DF, ONCE A DAY
     Route: 048

REACTIONS (2)
  - Off label use [Unknown]
  - Diabetes mellitus [Unknown]
